FAERS Safety Report 25206975 (Version 3)
Quarter: 2025Q3

REPORT INFORMATION
  Report Type: Report from Study
  Country: US (occurrence: US)
  Receive Date: 20250417
  Receipt Date: 20250922
  Transmission Date: 20251020
  Serious: No
  Sender: SUNOVION
  Company Number: US-SUMITOMO PHARMA SWITZERLAND GMBH-2025SPA003520

PATIENT
  Age: 67 Year
  Sex: Male

DRUGS (13)
  1. ORGOVYX [Suspect]
     Active Substance: RELUGOLIX
     Indication: Prostate cancer
     Dosage: 120 MG, QD
     Route: 048
     Dates: start: 202502
  2. XTANDI [Suspect]
     Active Substance: ENZALUTAMIDE
     Indication: Product used for unknown indication
  3. ATORVASTATIN [Concomitant]
     Active Substance: ATORVASTATIN
  4. CLARITIN [Concomitant]
     Active Substance: LORATADINE
  5. GLIPIZIDE [Concomitant]
     Active Substance: GLIPIZIDE
  6. LEVOTHYROXINE [Concomitant]
     Active Substance: LEVOTHYROXINE
  7. OZEMPIC [Concomitant]
     Active Substance: SEMAGLUTIDE
  8. ASPIRIN [Concomitant]
     Active Substance: ASPIRIN
  9. LUTEIN [Concomitant]
     Active Substance: LUTEIN
  10. VITAMIN C [Concomitant]
     Active Substance: ASCORBIC ACID
  11. ARGININE [Concomitant]
     Active Substance: ARGININE
  12. LANTUS SOLOSTAR [Concomitant]
     Active Substance: INSULIN GLARGINE
  13. CINNAMON [Concomitant]
     Active Substance: CINNAMON

REACTIONS (10)
  - Body temperature fluctuation [Unknown]
  - Chest pain [Unknown]
  - Pain [Unknown]
  - Morning sickness [Unknown]
  - Chills [Unknown]
  - Feeling cold [Unknown]
  - Asthenia [Unknown]
  - Hot flush [Unknown]
  - Hyperhidrosis [Unknown]
  - Incorrect dose administered [Recovered/Resolved]
